FAERS Safety Report 6220730-9 (Version None)
Quarter: 2009Q2

REPORT INFORMATION
  Report Type: 
  Country: None (occurrence: None)
  Receive Date: 20090610
  Receipt Date: 20090601
  Transmission Date: 20091009
  Serious: Yes (Other)
  Sender: FDA-Public Use
  Company Number: PHHY2009JP22165

PATIENT

DRUGS (3)
  1. GLEEVEC [Suspect]
     Indication: CHRONIC MYELOID LEUKAEMIA
     Dosage: 300 MG DAILY
     Route: 048
  2. GLEEVEC [Suspect]
     Dosage: 400 MG DAILY
     Route: 048
  3. GLEEVEC [Suspect]
     Dosage: 300 MG DAILY
     Route: 048

REACTIONS (1)
  - OSTEONECROSIS [None]
